FAERS Safety Report 14020804 (Version 2)
Quarter: 2019Q1

REPORT INFORMATION
  Report Type: Spontaneous
  Country: US (occurrence: US)
  Receive Date: 20170928
  Receipt Date: 20190201
  Transmission Date: 20190417
  Serious: Yes (Hospitalization)
  Sender: FDA-Public Use
  Company Number: US-PFIZER INC-2017416312

PATIENT
  Age: 26 Month
  Sex: Male

DRUGS (9)
  1. NIFEDIPINE. [Suspect]
     Active Substance: NIFEDIPINE
     Indication: FIBROMYALGIA
     Dosage: UNK
     Route: 048
  2. BUPIVACAINE HCL [Suspect]
     Active Substance: BUPIVACAINE HYDROCHLORIDE
     Indication: FIBROMYALGIA
     Dosage: UNK
     Route: 048
  3. CYCLOBENZAPRINE. [Suspect]
     Active Substance: CYCLOBENZAPRINE
     Indication: FIBROMYALGIA
     Dosage: UNK
     Route: 048
  4. BACLOFEN. [Suspect]
     Active Substance: BACLOFEN
     Indication: FIBROMYALGIA
     Dosage: UNK
     Route: 048
  5. KETAMINE HCL [Suspect]
     Active Substance: KETAMINE HYDROCHLORIDE
     Indication: FIBROMYALGIA
     Dosage: UNK
     Route: 048
  6. MENTHOL. [Suspect]
     Active Substance: MENTHOL
     Indication: FIBROMYALGIA
     Dosage: UNK
     Route: 048
  7. DICLOFENAC SODIUM. [Suspect]
     Active Substance: DICLOFENAC SODIUM
     Indication: FIBROMYALGIA
     Dosage: UNK
     Route: 048
  8. GABAPENTIN. [Suspect]
     Active Substance: GABAPENTIN
     Dosage: UNK
     Route: 048
  9. CLONIDINE. [Suspect]
     Active Substance: CLONIDINE
     Indication: FIBROMYALGIA
     Dosage: UNK
     Route: 048

REACTIONS (7)
  - Incorrect route of product administration [Unknown]
  - Prescription drug used without a prescription [Recovered/Resolved]
  - Toxicity to various agents [Recovered/Resolved]
  - Irritability [Recovered/Resolved]
  - Hypotension [Recovered/Resolved]
  - Accidental exposure to product by child [Unknown]
  - Somnolence [Recovered/Resolved]
